FAERS Safety Report 7548909-4 (Version None)
Quarter: 2011Q2

REPORT INFORMATION
  Report Type: 
  Country: None (occurrence: None)
  Receive Date: 20110615
  Receipt Date: 20110610
  Transmission Date: 20111010
  Serious: Yes (Other)
  Sender: FDA-Public Use
  Company Number: US-PFIZER INC-2011127675

PATIENT
  Sex: Female
  Weight: 102.4 kg

DRUGS (11)
  1. KLONOPIN [Concomitant]
     Indication: BIPOLAR DISORDER
     Dosage: 2 MG, 2X/DAY
  2. KINERET [Concomitant]
     Indication: RHEUMATOID ARTHRITIS
     Dosage: UNK, 1X/DAY
  3. TRAZODONE [Concomitant]
     Dosage: UNK
  4. METHOTREXATE [Concomitant]
     Indication: RHEUMATOID ARTHRITIS
     Dosage: 0.6 CC, WEEKLY
  5. LYRICA [Suspect]
     Indication: FIBROMYALGIA
     Dosage: 150 MG, 1X/DAY (NIGHT)
     Route: 048
     Dates: start: 20080101
  6. LYRICA [Suspect]
     Dosage: 150MG +300MG
     Route: 048
     Dates: start: 20090101, end: 20100501
  7. LYRICA [Suspect]
     Dosage: 300 MG, 2X/DAY
     Route: 048
     Dates: start: 20100501
  8. LASIX [Concomitant]
     Dosage: UNK, 2X/DAY
  9. ABILIFY [Concomitant]
     Indication: BIPOLAR DISORDER
     Dosage: 30 MG, 1X/DAY
  10. ZONEGRAN [Concomitant]
     Indication: BIPOLAR DISORDER
     Dosage: 500 MG, 1X/DAY
  11. LYRICA [Suspect]
     Dosage: 300 MG, 1X/DAY (NIGHT)
     Route: 048

REACTIONS (5)
  - PLATELET COUNT DECREASED [None]
  - JOINT SWELLING [None]
  - OEDEMA PERIPHERAL [None]
  - BLADDER DISORDER [None]
  - DRUG EFFECT DECREASED [None]
